FAERS Safety Report 8191990-2 (Version None)
Quarter: 2012Q1

REPORT INFORMATION
  Report Type: 
  Country: None (occurrence: None)
  Receive Date: 20120307
  Receipt Date: 20120301
  Transmission Date: 20120608
  Serious: Yes (Other)
  Sender: FDA-Public Use
  Company Number: PHFR2012GB001483

PATIENT

DRUGS (1)
  1. SANDOSTATIN LAR [Suspect]
     Dosage: 20 MG, UNK

REACTIONS (1)
  - INJECTION SITE INJURY [None]
